FAERS Safety Report 12047153 (Version 1)
Quarter: 2016Q1

REPORT INFORMATION
  Report Type: Spontaneous
  Country: US (occurrence: US)
  Receive Date: 20160209
  Receipt Date: 20160209
  Transmission Date: 20160526
  Serious: Yes (Hospitalization)
  Sender: FDA-Public Use
  Company Number: US-WEST-WARD PHARMACEUTICALS CORP.-US-H14001-16-00200

PATIENT
  Age: 61 Year
  Sex: Male

DRUGS (3)
  1. BACLOFEN. [Concomitant]
     Active Substance: BACLOFEN
     Indication: PRODUCT USED FOR UNKNOWN INDICATION
     Route: 048
  2. BUPIVACAINE [Concomitant]
     Active Substance: BUPIVACAINE
     Indication: PRODUCT USED FOR UNKNOWN INDICATION
     Route: 037
  3. INFUMORPH [Suspect]
     Active Substance: MORPHINE SULFATE
     Indication: POST LAMINECTOMY SYNDROME
     Route: 037

REACTIONS (13)
  - Abdominal pain upper [Unknown]
  - Wheezing [Unknown]
  - Somnolence [Unknown]
  - Circulatory collapse [Unknown]
  - Infection [Unknown]
  - Nausea [Unknown]
  - Respiratory rate decreased [Unknown]
  - Gait disturbance [Unknown]
  - Unresponsive to stimuli [Unknown]
  - Malaise [Not Recovered/Not Resolved]
  - Vomiting [Unknown]
  - Sepsis [Unknown]
  - Underdose [Unknown]

NARRATIVE: CASE EVENT DATE: 20151229
